FAERS Safety Report 6457603-2 (Version None)
Quarter: 2009Q4

REPORT INFORMATION
  Report Type: 
  Country: None (occurrence: None)
  Receive Date: 20091125
  Receipt Date: 20091117
  Transmission Date: 20100525
  Serious: Yes (Hospitalization)
  Sender: FDA-Public Use
  Company Number: US-JNJFOC-20091105727

PATIENT
  Age: 29 Year
  Sex: Male

DRUGS (3)
  1. INVEGA SUSTENNA [Suspect]
     Indication: SCHIZOPHRENIA
     Route: 030
  2. COREG [Concomitant]
  3. DEPAKOTE ER [Concomitant]
     Dosage: 250 MG 6 TABLETS

REACTIONS (1)
  - CARDIAC FAILURE CONGESTIVE [None]
